FAERS Safety Report 8363082-0 (Version None)
Quarter: 2012Q2

REPORT INFORMATION
  Report Type: 
  Country: None (occurrence: None)
  Receive Date: 20120516
  Receipt Date: 20111021
  Transmission Date: 20120825
  Serious: Yes (Hospitalization)
  Sender: FDA-Public Use
  Company Number: US-ALEXION-A201101578

PATIENT
  Sex: Female

DRUGS (7)
  1. SOLIRIS [Suspect]
     Indication: PAROXYSMAL NOCTURNAL HAEMOGLOBINURIA
     Dosage: 900 MG UNK
     Route: 042
  2. FOLIC ACID [Concomitant]
  3. CALCIUM [Concomitant]
  4. NEXIUM [Concomitant]
  5. EXJADE [Concomitant]
  6. ARIXTRA [Concomitant]
     Indication: ANTIPHOSPHOLIPID SYNDROME
     Dosage: 25 MG QD
  7. ZOFRAN [Concomitant]

REACTIONS (3)
  - URINARY TRACT INFECTION [None]
  - NASOPHARYNGITIS [None]
  - ANAEMIA [None]
